FAERS Safety Report 6674918-3 (Version None)
Quarter: 2010Q2

REPORT INFORMATION
  Report Type: 
  Country: None (occurrence: None)
  Receive Date: 20100409
  Receipt Date: 20100401
  Transmission Date: 20101027
  Serious: Yes (Hospitalization)
  Sender: FDA-Public Use
  Company Number: US-SANOFI-AVENTIS-2010SA018584

PATIENT
  Sex: Male

DRUGS (2)
  1. LANTUS [Suspect]
     Dosage: 38 TO 48 UNITS
     Route: 058
  2. ALL OTHER THERAPEUTIC PRODUCTS [Concomitant]

REACTIONS (3)
  - HEART VALVE REPLACEMENT [None]
  - INFECTION [None]
  - NAUSEA [None]
